FAERS Safety Report 22247638 (Version 1)
Quarter: 2023Q2

REPORT INFORMATION
  Report Type: Spontaneous
  Country: US (occurrence: US)
  Receive Date: 20230425
  Receipt Date: 20230425
  Transmission Date: 20230722
  Serious: No
  Sender: FDA-Public Use
  Company Number: US-TOPROL-2022000212

PATIENT
  Sex: Female

DRUGS (2)
  1. METOPROLOL SUCCINATE [Suspect]
     Active Substance: METOPROLOL SUCCINATE
     Indication: Atrial fibrillation
     Route: 065
     Dates: end: 2022
  2. METOPROLOL SUCCINATE [Suspect]
     Active Substance: METOPROLOL SUCCINATE
     Dosage: ONE IN THE MORNING AND ONE IN THE EVENING, FOR THE LAST 3 OR 4 DAYS
     Route: 065
     Dates: start: 2022

REACTIONS (6)
  - Somnolence [Unknown]
  - Fatigue [Unknown]
  - Abnormal dreams [Unknown]
  - Sleep disorder [Unknown]
  - Product use in unapproved indication [Not Recovered/Not Resolved]
  - Inappropriate schedule of product administration [Not Recovered/Not Resolved]

NARRATIVE: CASE EVENT DATE: 20220101
